FAERS Safety Report 6735311-8 (Version None)
Quarter: 2010Q2

REPORT INFORMATION
  Report Type: 
  Country: None (occurrence: None)
  Receive Date: 20100519
  Receipt Date: 20100504
  Transmission Date: 20101027
  Serious: Yes (Other)
  Sender: FDA-Public Use
  Company Number: AUR-APL-2010-01297

PATIENT
  Age: 85 Year
  Sex: Female

DRUGS (2)
  1. METFORMIN HCL [Suspect]
  2. DIABETA [Suspect]
     Indication: TYPE 2 DIABETES MELLITUS

REACTIONS (3)
  - BLOOD GLUCOSE INCREASED [None]
  - LISTLESS [None]
  - MEMORY IMPAIRMENT [None]
